FAERS Safety Report 8203719-X (Version None)
Quarter: 2012Q1

REPORT INFORMATION
  Report Type: 
  Country: None (occurrence: None)
  Receive Date: 20120308
  Receipt Date: 20120222
  Transmission Date: 20120608
  Serious: Yes (Death)
  Sender: FDA-Public Use
  Company Number: JP-20120013

PATIENT
  Age: 72 Year
  Sex: Male

DRUGS (1)
  1. 480   10ML (LIPIODOL ULTRA FLUIDE) (ETHIODIZED OIL) [Suspect]
     Indication: THERAPEUTIC EMBOLISATION
     Dosage: (1 IN 1 D)
     Route: 013
     Dates: start: 20071201, end: 20071201

REACTIONS (4)
  - HEPATIC NEOPLASM MALIGNANT RECURRENT [None]
  - OFF LABEL USE [None]
  - NEOPLASM PROGRESSION [None]
  - GENERAL PHYSICAL HEALTH DETERIORATION [None]
